FAERS Safety Report 8055050-3 (Version None)
Quarter: 2011Q4

REPORT INFORMATION
  Report Type: 
  Country: None (occurrence: None)
  Receive Date: 20111213
  Receipt Date: 20110822
  Transmission Date: 20120403
  Serious: No
  Sender: FDA-Public Use
  Company Number: 2011SP039654

PATIENT
  Age: 55 Year
  Sex: Male

DRUGS (2)
  1. LITHIUM [Concomitant]
  2. SAPHRIS [Suspect]
     Indication: BIPOLAR I DISORDER
     Dosage: 10 MG; QD

REACTIONS (2)
  - INAPPROPRIATE SCHEDULE OF DRUG ADMINISTRATION [None]
  - MUSCLE TIGHTNESS [None]
